FAERS Safety Report 24462571 (Version 4)
Quarter: 2024Q4

REPORT INFORMATION
  Report Type: Report from Study
  Country: CO (occurrence: CO)
  Receive Date: 20241018
  Receipt Date: 20241025
  Transmission Date: 20250114
  Serious: Yes (Hospitalization, Other)
  Sender: ROCHE
  Company Number: CO-ROCHE-10000108392

PATIENT
  Age: 59 Year
  Sex: Male
  Weight: 84.4 kg

DRUGS (13)
  1. ATEZOLIZUMAB [Suspect]
     Active Substance: ATEZOLIZUMAB
     Indication: Hepatocellular carcinoma
     Dosage: ON 29-AUG-2024, HE RECEIVED MOST RECENT DOSE PRIOR AE IS 1200 MG, SAE IS 1290 MG.
     Route: 042
     Dates: start: 20230324
  2. BEVACIZUMAB [Suspect]
     Active Substance: BEVACIZUMAB
     Indication: Hepatocellular carcinoma
     Route: 065
     Dates: start: 20230324
  3. ONDANSETRON [Concomitant]
     Active Substance: ONDANSETRON
     Dates: start: 20240829, end: 20240829
  4. METFORMIN [Concomitant]
     Active Substance: METFORMIN HYDROCHLORIDE
     Dates: start: 201907
  5. ROSUVASTATIN [Concomitant]
     Active Substance: ROSUVASTATIN
     Indication: Disease risk factor
     Dates: start: 202305
  6. CARVEDILOL [Concomitant]
     Active Substance: CARVEDILOL
     Dates: start: 202310
  7. ENALAPRIL [Concomitant]
     Active Substance: ENALAPRIL
     Dates: start: 20240826
  8. APIXABAN [Concomitant]
     Active Substance: APIXABAN
     Indication: Adverse event
     Dates: start: 20231215
  9. LEVOTHYROXINE [Concomitant]
     Active Substance: LEVOTHYROXINE
     Indication: Adverse event
     Dates: start: 20240529
  10. ACETAMINOPHEN [Concomitant]
     Active Substance: ACETAMINOPHEN
     Indication: Adverse event
     Dates: start: 20241014, end: 20241016
  11. CEFTRIAXONE [Concomitant]
     Active Substance: CEFTRIAXONE
     Indication: Adverse event
     Dates: start: 20241014, end: 20241015
  12. DICLOFENAC SODIUM [Concomitant]
     Active Substance: DICLOFENAC SODIUM
     Indication: Adverse event
     Dates: start: 20241014, end: 20241016
  13. SCOPOLAMINE [Concomitant]
     Active Substance: SCOPOLAMINE
     Indication: Adverse event
     Dates: start: 20241014, end: 20241016

REACTIONS (2)
  - Urinary tract infection [Recovered/Resolved]
  - Acute kidney injury [Recovering/Resolving]

NARRATIVE: CASE EVENT DATE: 20240927
